FAERS Safety Report 11937497 (Version 3)
Quarter: 2016Q1

REPORT INFORMATION
  Report Type: Spontaneous
  Country: US (occurrence: US)
  Receive Date: 20160121
  Receipt Date: 20160210
  Transmission Date: 20160526
  Serious: No
  Sender: FDA-Public Use
  Company Number: US-009507513-1601USA007104

PATIENT
  Age: 66 Year
  Sex: Male

DRUGS (3)
  1. KEYTRUDA [Suspect]
     Active Substance: PEMBROLIZUMAB
     Indication: MALIGNANT MELANOMA
     Dosage: UNK, Q3W
     Route: 042
     Dates: start: 201508, end: 20160114
  2. PRINIVIL [Concomitant]
     Active Substance: LISINOPRIL
     Dosage: UNK
  3. HERBS (UNSPECIFIED) [Concomitant]
     Active Substance: HERBALS
     Dosage: UNK

REACTIONS (12)
  - Weight decreased [Recovered/Resolved]
  - Decreased appetite [Unknown]
  - Liver tenderness [Recovered/Resolved]
  - Pulmonary mass [Unknown]
  - Stomatitis [Recovered/Resolved]
  - Blood sodium decreased [Unknown]
  - Fatigue [Unknown]
  - Cough [Unknown]
  - Hepatic enzyme abnormal [Unknown]
  - Abdominal discomfort [Unknown]
  - Lethargy [Not Recovered/Not Resolved]
  - Hepatic enzyme increased [Unknown]

NARRATIVE: CASE EVENT DATE: 2015
